FAERS Safety Report 8559753-3 (Version None)
Quarter: 2012Q3

REPORT INFORMATION
  Report Type: 
  Country: None (occurrence: None)
  Receive Date: 20120802
  Receipt Date: 20120731
  Transmission Date: 20120928
  Serious: Yes (Other)
  Sender: FDA-Public Use
  Company Number: VE-PFIZER INC-2012185482

PATIENT
  Sex: Female

DRUGS (3)
  1. LIPITOR [Concomitant]
     Dosage: UNK
  2. ZOLOFT [Concomitant]
     Dosage: UNK
  3. LYRICA [Suspect]
     Dosage: 75 MG, UNK

REACTIONS (1)
  - ARTHROPATHY [None]
